FAERS Safety Report 20503296 (Version 1)
Quarter: 2022Q1

REPORT INFORMATION
  Report Type: Spontaneous
  Country: CA (occurrence: CA)
  Receive Date: 20220222
  Receipt Date: 20220222
  Transmission Date: 20220424
  Serious: Yes (Hospitalization, Other)
  Sender: FDA-Public Use
  Company Number: CA-SAMSUNG BIOEPIS-SB-2022-04175

PATIENT
  Age: 73 Year
  Sex: Female

DRUGS (15)
  1. INFLIXIMAB [Suspect]
     Active Substance: INFLIXIMAB
     Indication: Colitis ulcerative
     Route: 042
  2. ASACOL [Suspect]
     Active Substance: MESALAMINE
     Indication: Product used for unknown indication
     Dosage: ENTERIC COATED
     Route: 048
  3. ASACOL [Suspect]
     Active Substance: MESALAMINE
     Route: 048
  4. FELODIPINE [Suspect]
     Active Substance: FELODIPINE
     Indication: Product used for unknown indication
     Dosage: EXTENDED RELEASE
     Route: 048
  5. METFORMIN [Suspect]
     Active Substance: METFORMIN HYDROCHLORIDE
     Indication: Product used for unknown indication
     Route: 065
  6. PREDNISONE [Suspect]
     Active Substance: PREDNISONE
     Indication: Pruritus
     Route: 048
  7. PREDNISONE [Suspect]
     Active Substance: PREDNISONE
     Dosage: UNKNOWN
     Route: 065
  8. QUINAPRIL HYDROCHLORIDE [Suspect]
     Active Substance: QUINAPRIL HYDROCHLORIDE
     Indication: Product used for unknown indication
     Route: 065
  9. QUINAPRIL HYDROCHLORIDE [Suspect]
     Active Substance: QUINAPRIL HYDROCHLORIDE
     Route: 065
  10. REMICADE [Suspect]
     Active Substance: INFLIXIMAB
     Indication: Colitis ulcerative
     Dosage: POWDER FOR SOLUTION INTRAVENOUS
     Route: 042
  11. SYNTHROID [Suspect]
     Active Substance: LEVOTHYROXINE SODIUM
     Indication: Product used for unknown indication
     Route: 065
  12. TOVIAZ [Suspect]
     Active Substance: FESOTERODINE FUMARATE
     Indication: Product used for unknown indication
     Dosage: EXTENDED RELEASE
     Route: 065
  13. METOCLOPRAMIDE HYDROCHLORIDE [Concomitant]
     Active Substance: METOCLOPRAMIDE HYDROCHLORIDE
     Indication: Pruritus
     Dosage: UNKNOWN
     Route: 065
  14. IMIPRAMINE [Concomitant]
     Active Substance: IMIPRAMINE
     Indication: Product used for unknown indication
     Dosage: UNKNOWN
     Route: 065
  15. DULAGLUTIDE [Concomitant]
     Active Substance: DULAGLUTIDE
     Indication: Diabetes mellitus
     Dosage: UNKNOWN
     Route: 065

REACTIONS (5)
  - Colitis [Unknown]
  - Colitis ulcerative [Unknown]
  - Decreased activity [Unknown]
  - Frequent bowel movements [Unknown]
  - Rectal haemorrhage [Unknown]
